FAERS Safety Report 12475223 (Version 2)
Quarter: 2016Q3

REPORT INFORMATION
  Report Type: Spontaneous
  Country: US (occurrence: US)
  Receive Date: 20160617
  Receipt Date: 20160805
  Transmission Date: 20161109
  Serious: No
  Sender: FDA-Public Use
  Company Number: US-PFIZER INC-2016203093

PATIENT
  Age: 66 Year
  Sex: Male
  Weight: 55.3 kg

DRUGS (5)
  1. SUTENT [Suspect]
     Active Substance: SUNITINIB MALATE
     Dosage: 37.5 MG, 1X/DAY, 37.5 MG CAPSULES, ONE PER DAY
     Dates: start: 20160423, end: 20160525
  2. COMBIVENT [Concomitant]
     Active Substance: ALBUTEROL SULFATE\IPRATROPIUM BROMIDE
     Indication: DYSPNOEA
     Dosage: 1 PUFF, PRN
     Route: 055
  3. MORPHINE [Concomitant]
     Active Substance: MORPHINE
     Indication: PAIN
     Dosage: 15 MG, EVERY 12H
  4. SUTENT [Suspect]
     Active Substance: SUNITINIB MALATE
     Indication: SMALL CELL LUNG CANCER
     Dosage: 37.5 MG, DAILY
     Route: 048
     Dates: start: 20160323
  5. OMEPRAZOLE. [Concomitant]
     Active Substance: OMEPRAZOLE
     Indication: DYSPEPSIA
     Dosage: 1 TAB, DAILY

REACTIONS (6)
  - Malaise [Recovered/Resolved]
  - Gait disturbance [Recovered/Resolved]
  - Fatigue [Recovered/Resolved]
  - Product use issue [Recovered/Resolved]
  - Activities of daily living impaired [Recovered/Resolved]
  - Asthenia [Recovered/Resolved]

NARRATIVE: CASE EVENT DATE: 20160323
